FAERS Safety Report 17707448 (Version 1)
Quarter: 2020Q2

REPORT INFORMATION
  Report Type: Spontaneous
  Country: DK (occurrence: DK)
  Receive Date: 20200424
  Receipt Date: 20200424
  Transmission Date: 20200714
  Serious: Yes (Hospitalization)
  Sender: FDA-Public Use
  Company Number: NVSC2020DK109505

PATIENT
  Age: 72 Year
  Sex: Female

DRUGS (5)
  1. OXAPAX [Suspect]
     Active Substance: OXAZEPAM
     Indication: SEDATIVE THERAPY
     Dosage: STYRKE: 15 MG
     Route: 048
     Dates: start: 20160711
  2. NITRAZEPAM ^DAK^ [Suspect]
     Active Substance: NITRAZEPAM
     Indication: INSOMNIA
     Dosage: STYRKE: 5 MG
     Route: 048
     Dates: start: 20140714
  3. DAIVOBET [Concomitant]
     Active Substance: BETAMETHASONE DIPROPIONATE\CALCIPOTRIENE
     Indication: PSORIASIS
     Dosage: STYRKE: 50 MKG/G+0,5MG/G,
     Route: 003
     Dates: start: 20190625
  4. LOCOID [Concomitant]
     Active Substance: HYDROCORTISONE BUTYRATE
     Indication: SKIN DISORDER
     Dosage: STYRKE: 0,1 %, DOSIS: 2 GANGE DAGLIGT TIL B?JEFURER
     Route: 003
     Dates: start: 20191219
  5. DERMOVAT [Concomitant]
     Active Substance: CLOBETASOL
     Indication: PSORIASIS
     Dosage: STYRKE: 0,5 MG/G, DOSIS: 2 GANGE DAGLIGT TIL ARME OG BEN I 2 UGER
     Route: 003
     Dates: start: 20190319

REACTIONS (4)
  - Femur fracture [Unknown]
  - Wrist fracture [Unknown]
  - Fall [Recovered/Resolved]
  - Pain [Unknown]

NARRATIVE: CASE EVENT DATE: 20191221
